FAERS Safety Report 11767672 (Version 3)
Quarter: 2016Q1

REPORT INFORMATION
  Report Type: Spontaneous
  Country: JP (occurrence: JP)
  Receive Date: 20151123
  Receipt Date: 20160105
  Transmission Date: 20160525
  Serious: Yes (Death, Hospitalization)
  Sender: FDA-Public Use
  Company Number: JP-SUCAMPO PHARMA AMERICAS, LLC-SPI201501047

PATIENT
  Age: 46 Year
  Sex: Female

DRUGS (17)
  1. CALONAL [Concomitant]
     Active Substance: ACETAMINOPHEN
     Indication: CANCER PAIN
     Dosage: UNK
     Route: 048
     Dates: start: 20121112
  2. UNKNOWN [Concomitant]
     Active Substance: UNSPECIFIED INGREDIENT
     Indication: BREAST CANCER RECURRENT
     Dosage: UNK
     Route: 042
     Dates: start: 20150730
  3. UNKNOWN [Concomitant]
     Active Substance: UNSPECIFIED INGREDIENT
     Indication: CHRONIC GASTRITIS
     Dosage: UNK
     Route: 048
     Dates: start: 20130312
  4. WYPAX [Concomitant]
     Active Substance: LORAZEPAM
     Indication: ADJUSTMENT DISORDER
     Dosage: UNK
     Route: 048
     Dates: start: 20130531
  5. ONE TAXOTERE [Concomitant]
     Indication: BREAST CANCER RECURRENT
     Dosage: UNK
     Route: 042
     Dates: start: 20150730
  6. RANMARK [Concomitant]
     Active Substance: DENOSUMAB
     Indication: METASTASES TO BONE
     Dosage: UNK
     Route: 058
     Dates: start: 20140527
  7. UNKNOWN [Concomitant]
     Active Substance: UNSPECIFIED INGREDIENT
     Indication: CANCER PAIN
     Dosage: UNK
     Route: 048
     Dates: start: 20130312
  8. HYALEIN MINI [Concomitant]
     Indication: XEROPHTHALMIA
     Dosage: UNK
     Route: 047
     Dates: start: 20140415
  9. AMITIZA [Suspect]
     Active Substance: LUBIPROSTONE
     Indication: CONSTIPATION
     Dosage: 24 MCG, BID
     Route: 048
     Dates: start: 20151009, end: 20151013
  10. LEXAPRO [Concomitant]
     Active Substance: ESCITALOPRAM OXALATE
     Indication: INSOMNIA
     Dosage: UNK
     Route: 048
     Dates: start: 20130308
  11. PERJETA [Suspect]
     Active Substance: PERTUZUMAB
     Indication: BREAST CANCER RECURRENT
     Dosage: UNK
     Route: 042
     Dates: start: 20150730
  12. ZYPREXA [Concomitant]
     Active Substance: OLANZAPINE
     Indication: ADJUSTMENT DISORDER
     Dosage: UNK
     Route: 048
     Dates: start: 20130308
  13. MS CONTIN [Concomitant]
     Active Substance: MORPHINE SULFATE
     Indication: CANCER PAIN
     Dosage: UNK
     Route: 048
     Dates: start: 20141021
  14. ORGADRONE [Concomitant]
     Active Substance: DEXAMETHASONE SODIUM PHOSPHATE
     Indication: BREAST CANCER RECURRENT
     Dosage: UNK
     Route: 042
     Dates: start: 20150730
  15. HERCEPTIN [Concomitant]
     Active Substance: TRASTUZUMAB
     Indication: BREAST CANCER RECURRENT
     Dosage: UNK
     Route: 042
     Dates: start: 20150224
  16. LYRICA [Concomitant]
     Active Substance: PREGABALIN
     Indication: PROCEDURAL PAIN
     Dosage: UNK
     Route: 048
     Dates: start: 20131125
  17. FERROMIA [Concomitant]
     Active Substance: FERROUS CITRATE
     Indication: ANAEMIA
     Dosage: UNK
     Route: 048
     Dates: start: 20150914

REACTIONS (14)
  - Death [Fatal]
  - Dehydration [Unknown]
  - Hypokalaemia [Recovered/Resolved]
  - Cold sweat [Unknown]
  - Faeces discoloured [Unknown]
  - Somnolence [Unknown]
  - Pneumonia [Recovered/Resolved]
  - Altered state of consciousness [Recovering/Resolving]
  - Lid sulcus deepened [Unknown]
  - Asterixis [Unknown]
  - Drug effect increased [Unknown]
  - Diarrhoea [Not Recovered/Not Resolved]
  - Urine output decreased [Unknown]
  - Pallor [Unknown]

NARRATIVE: CASE EVENT DATE: 20151013
